FAERS Safety Report 24069433 (Version 1)
Quarter: 2024Q3

REPORT INFORMATION
  Report Type: Report from Study
  Country: US (occurrence: US)
  Receive Date: 20240710
  Receipt Date: 20240710
  Transmission Date: 20241016
  Serious: No
  Sender: ROCHE
  Company Number: US-ROCHE-3566997

PATIENT
  Age: 68 Year
  Sex: Female

DRUGS (1)
  1. VABYSMO [Suspect]
     Active Substance: FARICIMAB\FARICIMAB-SVOA
     Indication: Retinal neovascularisation
     Dosage: ANTICIPATED DATE OF TREATMENT: 30/JAN/2024, DATE OF SERVICE: 19/MAY/2024, CARTON CONTAINING 1 VIAL A
     Route: 050
     Dates: start: 20230725

REACTIONS (2)
  - Off label use [Unknown]
  - No adverse event [Unknown]

NARRATIVE: CASE EVENT DATE: 20230725
